FAERS Safety Report 20478310 (Version 1)
Quarter: 2022Q1

REPORT INFORMATION
  Report Type: Report from Study
  Country: AU (occurrence: AU)
  Receive Date: 20220216
  Receipt Date: 20220216
  Transmission Date: 20220423
  Serious: Yes (Death, Life-Threatening, Hospitalization, Other)
  Sender: FDA-Public Use
  Company Number: AU-JNJFOC-20220222751

PATIENT
  Age: 61 Year
  Sex: Male

DRUGS (31)
  1. BORTEZOMIB [Suspect]
     Active Substance: BORTEZOMIB
     Indication: Plasma cell myeloma
     Dosage: UNK
     Route: 065
     Dates: start: 20210625, end: 20210705
  2. DEXAMETHASONE [Suspect]
     Active Substance: DEXAMETHASONE
     Indication: Plasma cell myeloma
     Dosage: UNK
     Route: 065
     Dates: start: 20210625, end: 20210710
  3. BELANTAMAB MAFODOTIN [Suspect]
     Active Substance: BELANTAMAB MAFODOTIN
     Indication: Plasma cell myeloma
     Dosage: 1.9 MILLIGRAM/KILOGRAM
     Route: 042
     Dates: start: 20210625, end: 20210625
  4. ASPIRIN [Concomitant]
     Active Substance: ASPIRIN
     Indication: Thrombosis prophylaxis
     Dosage: 100 MILLIGRAM
     Route: 065
     Dates: start: 201802, end: 20210703
  5. OXYCODONE HYDROCHLORIDE [Concomitant]
     Active Substance: OXYCODONE HYDROCHLORIDE
     Indication: Plasma cell myeloma
     Dosage: 5 MILLIGRAM
     Route: 048
     Dates: start: 20180619, end: 20210705
  6. VALACYCLOVIR HYDROCHLORIDE [Concomitant]
     Active Substance: VALACYCLOVIR HYDROCHLORIDE
     Indication: Antiviral prophylaxis
     Dosage: 500 MILLIGRAM, QD
     Route: 048
     Dates: start: 20210514
  7. LIDOCAINE [Concomitant]
     Active Substance: LIDOCAINE
     Indication: Plasma cell myeloma
     Dosage: 10 MILLILITER
     Route: 058
     Dates: start: 20210608, end: 20210608
  8. METHOXYFLURANE [Concomitant]
     Active Substance: METHOXYFLURANE
     Indication: Plasma cell myeloma
     Dosage: UNK
     Route: 045
     Dates: start: 20210608, end: 20210608
  9. SODIUM CHLORIDE [Concomitant]
     Active Substance: SODIUM CHLORIDE
     Indication: Plasma cell myeloma
     Dosage: 1 LITER
     Route: 042
     Dates: start: 20210618
  10. SODIUM CHLORIDE [Concomitant]
     Active Substance: SODIUM CHLORIDE
     Dosage: 500 LITER
     Route: 042
     Dates: start: 20210620
  11. SODIUM CHLORIDE [Concomitant]
     Active Substance: SODIUM CHLORIDE
     Dosage: 100 MILLILITER
     Route: 042
     Dates: start: 20210622, end: 20210622
  12. SODIUM CHLORIDE [Concomitant]
     Active Substance: SODIUM CHLORIDE
     Dosage: 2 LITER
     Route: 042
     Dates: start: 20210626, end: 20210626
  13. PAMIDRONATE DISODIUM [Concomitant]
     Active Substance: PAMIDRONATE DISODIUM
     Dosage: 30 MILLIGRAM
     Route: 042
     Dates: start: 20210620, end: 20210620
  14. ZOLEDRONIC ACID [Concomitant]
     Active Substance: ZOLEDRONIC ACID
     Indication: Plasma cell myeloma
     Dosage: 4 MILLIGRAM
     Route: 042
     Dates: start: 20181001, end: 20210622
  15. CARBOXYMETHYLCELLULOSE [Concomitant]
     Active Substance: CARBOXYMETHYLCELLULOSE
     Indication: Prophylaxis
     Dosage: UNK
     Route: 047
     Dates: start: 20210625, end: 20210630
  16. MOVICOL [Concomitant]
     Active Substance: POLYETHYLENE GLYCOL 3350\POTASSIUM CHLORIDE\SODIUM BICARBONATE\SODIUM CHLORIDE
     Indication: Constipation
     Dosage: UNK
     Route: 048
     Dates: start: 201804, end: 20210712
  17. MENATETRENONE [Concomitant]
     Active Substance: MENATETRENONE
     Dosage: UNK
     Route: 065
  18. MAGNESIUM [Concomitant]
     Active Substance: MAGNESIUM
     Indication: Metabolic disorder prophylaxis
     Dosage: 160 MICROGRAM
     Route: 048
     Dates: start: 201802, end: 20210630
  19. ASCORBIC ACID [Concomitant]
     Active Substance: ASCORBIC ACID
     Dosage: 500 MILLIGRAM
     Route: 048
     Dates: start: 201802, end: 20210630
  20. FOLIC ACID [Concomitant]
     Active Substance: FOLIC ACID
     Dosage: 500 MICROGRAM
     Route: 048
     Dates: start: 201802, end: 20210630
  21. UBIDECARENONE [Concomitant]
     Active Substance: UBIDECARENONE
     Indication: Prophylaxis
     Dosage: 100 MILLIGRAM
     Route: 048
     Dates: start: 201802, end: 20210630
  22. ZINC [Concomitant]
     Active Substance: ZINC
     Dosage: 25 MICROGRAM
     Route: 048
     Dates: start: 201802, end: 20210630
  23. SODIUM BICARBONATE [Concomitant]
     Active Substance: SODIUM BICARBONATE
     Indication: Plasma cell myeloma
     Dosage: 840 MILLIGRAM
     Route: 048
     Dates: start: 20210701
  24. RISPERIDONE [Concomitant]
     Active Substance: RISPERIDONE
     Indication: Plasma cell myeloma
     Dosage: 0.5 MILLIGRAM
     Route: 048
     Dates: start: 20210704, end: 20210704
  25. ACETAMINOPHEN [Concomitant]
     Active Substance: ACETAMINOPHEN
     Indication: Plasma cell myeloma
     Dosage: 1 GRAM
     Route: 042
     Dates: start: 20210704, end: 20210704
  26. FLUCONAZOLE [Concomitant]
     Active Substance: FLUCONAZOLE
     Indication: Antifungal prophylaxis
     Dosage: 200 MILLIGRAM
     Route: 048
     Dates: start: 20210706
  27. FENTANYL [Concomitant]
     Active Substance: FENTANYL
     Indication: Plasma cell myeloma
     Dosage: 37 MICROGRAM
     Route: 062
     Dates: start: 20210703, end: 20210705
  28. DENOSUMAB [Concomitant]
     Active Substance: DENOSUMAB
     Indication: Plasma cell myeloma
     Dosage: 120 MILLIGRAM
     Route: 058
     Dates: start: 20210705, end: 20210705
  29. CALCITONIN [Concomitant]
     Active Substance: CALCITONIN
     Indication: Plasma cell myeloma
     Dosage: 50 MILLILITER
     Route: 042
     Dates: start: 20210702, end: 20210707
  30. MAGNESIUM SULFATE [Concomitant]
     Active Substance: MAGNESIUM SULFATE
     Indication: Plasma cell myeloma
     Dosage: 100 MILLILITER
     Route: 042
     Dates: start: 20210708
  31. PHYTONADIONE [Concomitant]
     Active Substance: PHYTONADIONE
     Dosage: UNK
     Route: 048
     Dates: start: 201802, end: 20210630

REACTIONS (3)
  - Plasma cell myeloma [Fatal]
  - Sepsis [Not Recovered/Not Resolved]
  - Tumour lysis syndrome [Not Recovered/Not Resolved]

NARRATIVE: CASE EVENT DATE: 20210629
